FAERS Safety Report 4374602-5 (Version None)
Quarter: 2004Q2

REPORT INFORMATION
  Report Type: 
  Country: None (occurrence: None)
  Receive Date: 20040609
  Receipt Date: 20040524
  Transmission Date: 20050107
  Serious: Yes (Other)
  Sender: FDA-Public Use
  Company Number: MX-ROCHE-368865

PATIENT
  Age: 10 Month
  Sex: Female
  Weight: 10 kg

DRUGS (1)
  1. ROCEPHIN [Suspect]
     Indication: PYELONEPHRITIS
     Route: 042
     Dates: start: 20040514, end: 20040518

REACTIONS (1)
  - RENAL FAILURE [None]
